FAERS Safety Report 13460657 (Version 1)
Quarter: 2017Q2

REPORT INFORMATION
  Report Type: Spontaneous
  Country: US (occurrence: US)
  Receive Date: 20170419
  Receipt Date: 20170419
  Transmission Date: 20170830
  Serious: Yes (Hospitalization)
  Sender: FDA-Public Use
  Company Number: None

PATIENT
  Age: 73 Year
  Sex: Male
  Weight: 86.8 kg

DRUGS (2)
  1. RITUXIMAB (MOAB C2B8 ANTI CD20, CHIMERIC) [Suspect]
     Active Substance: RITUXIMAB
     Dates: end: 20170316
  2. LENALIDOMIDE (CC-5013) [Suspect]
     Active Substance: LENALIDOMIDE
     Dates: end: 20170401

REACTIONS (6)
  - Nausea [None]
  - Pyrexia [None]
  - Vomiting projectile [None]
  - Diarrhoea [None]
  - Chills [None]
  - Headache [None]

NARRATIVE: CASE EVENT DATE: 20170416
